FAERS Safety Report 19364498 (Version 1)
Quarter: 2021Q2

REPORT INFORMATION
  Report Type: Spontaneous
  Country: US (occurrence: US)
  Receive Date: 20210602
  Receipt Date: 20210602
  Transmission Date: 20210717
  Serious: No
  Sender: FDA-Public Use
  Company Number: None

PATIENT
  Sex: Female
  Weight: 76.68 kg

DRUGS (14)
  1. DEXAMETHASONE. [Suspect]
     Active Substance: DEXAMETHASONE
     Indication: PLASMA CELL MYELOMA
     Dosage: ?          OTHER FREQUENCY:WEEKLY;?
     Route: 048
     Dates: start: 20201120
  2. TUMS [Concomitant]
     Active Substance: CALCIUM CARBONATE
  3. DICLOFENAC [Concomitant]
     Active Substance: DICLOFENAC
  4. VELCADE [Concomitant]
     Active Substance: BORTEZOMIB
  5. ASPIRIN. [Concomitant]
     Active Substance: ASPIRIN
  6. MENTHOL. [Concomitant]
     Active Substance: MENTHOL
  7. REVLIMID [Concomitant]
     Active Substance: LENALIDOMIDE
  8. ZOMETA [Concomitant]
     Active Substance: ZOLEDRONIC ACID
  9. MURO 128 [Concomitant]
     Active Substance: SODIUM CHLORIDE
  10. ONDANSETRON [Concomitant]
     Active Substance: ONDANSETRON
  11. PRAVASTATIN. [Concomitant]
     Active Substance: PRAVASTATIN
  12. LEVOTHYROXINE. [Concomitant]
     Active Substance: LEVOTHYROXINE
  13. CRANBERRY EXTRACT [Concomitant]
     Active Substance: CRANBERRY
  14. VITAMIN C [Concomitant]
     Active Substance: ASCORBIC ACID

REACTIONS (1)
  - Hypersensitivity [None]
